FAERS Safety Report 19491057 (Version 2)
Quarter: 2021Q3

REPORT INFORMATION
  Report Type: Spontaneous
  Country: US (occurrence: US)
  Receive Date: 20210705
  Receipt Date: 20210728
  Transmission Date: 20211014
  Serious: No
  Sender: FDA-Public Use
  Company Number: US-DSJP-DSU-2021-120372

PATIENT
  Age: 55 Year
  Sex: Female

DRUGS (1)
  1. TURALIO [Suspect]
     Active Substance: PEXIDARTINIB HYDROCHLORIDE
     Indication: GIANT CELL TUMOUR OF TENDON SHEATH
     Dosage: 400 MG, BID
     Route: 048
     Dates: start: 202010

REACTIONS (8)
  - Peripheral swelling [Unknown]
  - Arthralgia [Recovering/Resolving]
  - Dry eye [Unknown]
  - Rash [Recovered/Resolved]
  - Fatigue [Recovering/Resolving]
  - Gastrointestinal disorder [Recovered/Resolved]
  - Taste disorder [Recovered/Resolved]
  - Periorbital oedema [Unknown]

NARRATIVE: CASE EVENT DATE: 2020
